FAERS Safety Report 8818515 (Version 2)
Quarter: 2012Q4

REPORT INFORMATION
  Report Type: 
  Country: US (occurrence: US)
  Receive Date: 20121001
  Receipt Date: 20121018
  Transmission Date: 20130627
  Serious: Yes (Other)
  Sender: FDA-Public Use
  Company Number: US-BRISTOL-MYERS SQUIBB COMPANY-16981714

PATIENT
  Age: 73 Year
  Sex: Female
  Weight: 82 kg

DRUGS (3)
  1. METFORMIN HCL [Suspect]
     Indication: DIABETES MELLITUS
     Route: 048
  2. PLAVIX [Suspect]
     Indication: CORONARY ARTERIAL STENT INSERTION
     Dosage: Unknown #: 496-91-81,intrp on 11Jun12 + restr
     Dates: start: 2005
  3. CLOPIDOGREL BISULFATE [Suspect]
     Dosage: consumer temporarily discontinued Clopidogrel on 09Sep2012 until 17Sep2012
     Dates: start: 20120611

REACTIONS (3)
  - Lung neoplasm malignant [Unknown]
  - Myocardial infarction [Unknown]
  - Oedema peripheral [Unknown]
